FAERS Safety Report 9617168 (Version 1)
Quarter: 2013Q4

REPORT INFORMATION
  Report Type: Spontaneous
  Country: US (occurrence: US)
  Receive Date: 20131011
  Receipt Date: 20131011
  Transmission Date: 20140711
  Serious: No
  Sender: FDA-Public Use
  Company Number: US-PFIZER INC-2013291391

PATIENT
  Sex: Female

DRUGS (2)
  1. CELEBREX [Suspect]
     Dosage: 100 MG, 1X/DAY
     Dates: start: 201310, end: 201310
  2. CELEBREX [Suspect]
     Dosage: 100 MG, 2X/DAY
     Dates: start: 201310

REACTIONS (4)
  - Back pain [Unknown]
  - Musculoskeletal pain [Unknown]
  - Neck pain [Unknown]
  - Discomfort [Unknown]
